FAERS Safety Report 7250787-8 (Version None)
Quarter: 2011Q1

REPORT INFORMATION
  Report Type: 
  Country: None (occurrence: None)
  Receive Date: 20110119
  Receipt Date: 20110110
  Transmission Date: 20110831
  Serious: Yes (Other)
  Sender: FDA-Public Use
  Company Number: 017769

PATIENT
  Sex: Male
  Weight: 43 kg

DRUGS (5)
  1. DURAGESIC-100 [Concomitant]
  2. XATRAL [Concomitant]
  3. MOTILIUM [Concomitant]
  4. KEPPRA [Suspect]
     Indication: EPILEPSY
     Dosage: 750 MG, 250 MG + 500MG ORAL
     Route: 048
     Dates: start: 20100820, end: 20100825
  5. SONDALIS HP [Concomitant]

REACTIONS (9)
  - HEPATITIS [None]
  - BLOOD UREA DECREASED [None]
  - CHOLELITHIASIS [None]
  - HEPATOMEGALY [None]
  - CELL DEATH [None]
  - DISEASE RECURRENCE [None]
  - INFLAMMATION [None]
  - CHOLESTASIS [None]
  - LUNG DISORDER [None]
